FAERS Safety Report 4654029-9 (Version None)
Quarter: 2005Q2

REPORT INFORMATION
  Report Type: 
  Country: None (occurrence: None)
  Receive Date: 20050404
  Receipt Date: 20050111
  Transmission Date: 20051028
  Serious: No
  Sender: FDA-Public Use
  Company Number: USA050188028

PATIENT
  Sex: Female

DRUGS (18)
  1. CYMBALTA [Suspect]
     Indication: DEPRESSION
     Dosage: 30 MG/1 DAY
     Dates: start: 20041201
  2. PAXIL [Concomitant]
  3. PHENERGAN [Concomitant]
  4. PAIN MEDICATION [Concomitant]
  5. FOLIC ACID [Concomitant]
  6. PROTONIX [Concomitant]
  7. TRAZODONE [Concomitant]
  8. ZANAFLEX [Concomitant]
  9. SINGULAIR (MONTELUKAST) [Concomitant]
  10. TOPAMAX [Concomitant]
  11. OXYCONTIN [Concomitant]
  12. BACLOFEN [Concomitant]
  13. PRAVACHOL [Concomitant]
  14. PERCOCET [Concomitant]
  15. LISINOPRIL [Concomitant]
  16. CARBAMAZEPINE [Concomitant]
  17. DIOVAN [Concomitant]
  18. NORVASC [Concomitant]

REACTIONS (5)
  - FEELING HOT [None]
  - HEADACHE [None]
  - HOT FLUSH [None]
  - HYPERHIDROSIS [None]
  - NAUSEA [None]
